FAERS Safety Report 6852137-5 (Version None)
Quarter: 2010Q3

REPORT INFORMATION
  Report Type: 
  Country: None (occurrence: None)
  Receive Date: 20100717
  Receipt Date: 20080216
  Transmission Date: 20110219
  Serious: No
  Sender: FDA-Public Use
  Company Number: US-PFIZER INC-2007093253

PATIENT
  Sex: Female
  Weight: 61.69 kg

DRUGS (6)
  1. CHANTIX [Suspect]
     Indication: NICOTINE DEPENDENCE
     Route: 048
     Dates: start: 20070607, end: 20071030
  2. PAXIL [Concomitant]
  3. KLONOPIN [Concomitant]
  4. TENORMIN [Concomitant]
  5. PREMARIN [Concomitant]
  6. LOVASTATIN [Concomitant]

REACTIONS (5)
  - ABDOMINAL DISCOMFORT [None]
  - ABNORMAL DREAMS [None]
  - DIARRHOEA [None]
  - NAUSEA [None]
  - VOMITING [None]
